FAERS Safety Report 4422103-8 (Version None)
Quarter: 2004Q3

REPORT INFORMATION
  Report Type: 
  Country: None (occurrence: None)
  Receive Date: 20040805
  Receipt Date: 20040727
  Transmission Date: 20050211
  Serious: Yes (Other)
  Sender: FDA-Public Use
  Company Number: 2004225789US

PATIENT
  Age: 67 Year
  Sex: Female

DRUGS (6)
  1. PROVERA [Suspect]
     Dates: start: 19840101, end: 19980101
  2. PREMARIN [Suspect]
     Dates: start: 19840101, end: 19980101
  3. PREMPRO [Suspect]
     Dates: start: 19880101, end: 20000101
  4. ORTHO_PREFEST (ESTRADIOL,NORGESTIMATE) [Suspect]
     Dates: start: 20000101, end: 20020101
  5. FEMHRT [Suspect]
     Dates: start: 20000101, end: 20020101
  6. .. [Suspect]
     Dates: start: 20000101, end: 20020401

REACTIONS (1)
  - BREAST CANCER FEMALE [None]
